FAERS Safety Report 9664198 (Version 1)
Quarter: 2013Q4

REPORT INFORMATION
  Report Type: Spontaneous
  Country: US (occurrence: None)
  Receive Date: 20131030
  Receipt Date: 20131030
  Transmission Date: 20140711
  Serious: Yes (Life-Threatening)
  Sender: FDA-Public Use
  Company Number: None

PATIENT
  Age: 85 Year
  Sex: Male

DRUGS (17)
  1. VENOFER [Suspect]
     Indication: IRON DEFICIENCY ANAEMIA
     Route: 042
     Dates: start: 20130913, end: 20130913
  2. VITAMIN C [Concomitant]
  3. CALCIUM + VITAMIN D [Concomitant]
  4. CARVEDILOL [Concomitant]
  5. CLOPIDOGREL [Concomitant]
  6. DABIGATRAN [Concomitant]
  7. DIGOXIN [Concomitant]
  8. FERROUS SULFATE [Concomitant]
  9. FUROSEMIDE [Concomitant]
  10. MAGNESIUM OXIDE [Concomitant]
  11. MULTIVITAMIN [Concomitant]
  12. OMEGA 3 FATTY ACIDS [Concomitant]
  13. PANTOPRAZOLE [Concomitant]
  14. KCL [Concomitant]
  15. SPIRONOLACTONE [Concomitant]
  16. TAMSULOSIN [Concomitant]
  17. VITAMIN E [Concomitant]

REACTIONS (3)
  - Bradycardia [None]
  - Respiratory arrest [None]
  - Pulseless electrical activity [None]
